FAERS Safety Report 15066697 (Version 1)
Quarter: 2018Q2

REPORT INFORMATION
  Report Type: Spontaneous
  Country: US (occurrence: US)
  Receive Date: 20180626
  Receipt Date: 20180626
  Transmission Date: 20180711
  Serious: No
  Sender: FDA-Public Use
  Company Number: US-MYLANLABS-2018M1041124

PATIENT
  Sex: Male
  Weight: 100 kg

DRUGS (2)
  1. MUSE [Suspect]
     Active Substance: ALPROSTADIL
     Indication: ERECTILE DYSFUNCTION
     Dosage: 250 ?G, PRN
     Route: 066
     Dates: start: 2018
  2. MUSE [Suspect]
     Active Substance: ALPROSTADIL
     Dosage: 250 ?G, UNK
     Route: 066
     Dates: start: 20180602

REACTIONS (1)
  - Drug ineffective [Unknown]

NARRATIVE: CASE EVENT DATE: 2018
